FAERS Safety Report 9052511 (Version 2)
Quarter: 2013Q1

REPORT INFORMATION
  Report Type: Spontaneous
  Country: AU (occurrence: AU)
  Receive Date: 20130207
  Receipt Date: 20130219
  Transmission Date: 20140127
  Serious: Yes (Other)
  Sender: FDA-Public Use
  Company Number: PHHY2013AU011299

PATIENT
  Age: 71 None
  Sex: Female

DRUGS (7)
  1. ACLASTA [Suspect]
     Indication: OSTEOPOROSIS
     Dosage: 5 MG, UNK
     Route: 042
     Dates: start: 20120117
  2. ACLASTA [Suspect]
     Indication: FRACTURE
     Dosage: 5 MG, UNK
     Route: 042
     Dates: start: 20130204
  3. SOMAC [Concomitant]
     Route: 048
  4. COVERSYL                                /FRA/ [Concomitant]
     Route: 048
  5. MINAX [Concomitant]
     Route: 048
  6. OROXINE [Concomitant]
     Route: 048
  7. OCTACIN [Concomitant]
     Route: 048

REACTIONS (4)
  - Blood pressure increased [Recovered/Resolved]
  - Fall [Recovered/Resolved]
  - Head injury [Recovered/Resolved]
  - Headache [Recovered/Resolved]
